FAERS Safety Report 5901767-3 (Version None)
Quarter: 2008Q3

REPORT INFORMATION
  Report Type: 
  Country: None (occurrence: None)
  Receive Date: 20080926
  Receipt Date: 20080926
  Transmission Date: 20090109
  Serious: Yes (Other)
  Sender: FDA-Public Use
  Company Number: None

PATIENT
  Sex: Female
  Weight: 56 kg

DRUGS (2)
  1. KETOROLAC TROMETHAMINE [Suspect]
  2. MORPHINE [Suspect]

REACTIONS (1)
  - RASH PRURITIC [None]
